FAERS Safety Report 10362446 (Version 1)
Quarter: 2014Q1

REPORT INFORMATION
  Report Type: Spontaneous
  Country: US (occurrence: None)
  Receive Date: 20140306
  Receipt Date: 20140306
  Transmission Date: 20141002
  Serious: Yes (Disabling)
  Sender: FDA-Public Use
  Company Number: 163-21880-13061251

PATIENT
  Age: 89 Year
  Sex: Male
  Weight: 78.47 kg

DRUGS (7)
  1. REVLIMID [Suspect]
     Indication: MYELODYSPLASTIC SYNDROME
     Dosage: 10 MG, 21 IN 28 D, PO
     Route: 048
     Dates: start: 20130402, end: 20130507
  2. FINASTERIDE [Concomitant]
  3. GLIPIZIDE [Concomitant]
  4. JANUVIA [Concomitant]
  5. METOPROLOL [Concomitant]
  6. TAMSULOSIN [Concomitant]
  7. PROCRIT [Concomitant]

REACTIONS (1)
  - Platelet count decreased [None]
